FAERS Safety Report 14123440 (Version 1)
Quarter: 2017Q4

REPORT INFORMATION
  Report Type: Spontaneous
  Country: US (occurrence: US)
  Receive Date: 20171025
  Receipt Date: 20171025
  Transmission Date: 20180321
  Serious: Yes (Other)
  Sender: FDA-Public Use
  Company Number: None

PATIENT
  Age: 79 Year
  Sex: Female
  Weight: 81.45 kg

DRUGS (6)
  1. IBGUARD [Concomitant]
  2. VALSARTAN 80MG TABLETS [Suspect]
     Active Substance: VALSARTAN
     Indication: HYPERTENSION
     Route: 048
     Dates: start: 20170717, end: 20171008
  3. LEVOTHYROXINE. [Concomitant]
     Active Substance: LEVOTHYROXINE
  4. FUROSEMIDE. [Concomitant]
     Active Substance: FUROSEMIDE
  5. ADVIL [Concomitant]
     Active Substance: IBUPROFEN
  6. OMEPRAZOLE. [Concomitant]
     Active Substance: OMEPRAZOLE

REACTIONS (12)
  - Asthenia [None]
  - Peripheral swelling [None]
  - Musculoskeletal stiffness [None]
  - Cold sweat [None]
  - Micturition frequency decreased [None]
  - Vision blurred [None]
  - Musculoskeletal disorder [None]
  - Urine output decreased [None]
  - Fatigue [None]
  - Myalgia [None]
  - Sleep disorder due to general medical condition, insomnia type [None]
  - Therapy cessation [None]

NARRATIVE: CASE EVENT DATE: 20170717
